FAERS Safety Report 8160170-9 (Version None)
Quarter: 2012Q1

REPORT INFORMATION
  Report Type: 
  Country: None (occurrence: None)
  Receive Date: 20120223
  Receipt Date: 20120220
  Transmission Date: 20120608
  Serious: Yes (Hospitalization, Other)
  Sender: FDA-Public Use
  Company Number: ES-PFIZER INC-2011031959

PATIENT
  Age: 14 Year
  Sex: Male

DRUGS (4)
  1. BUDESONIDE [Interacting]
     Indication: COLITIS ULCERATIVE
  2. VORICONAZOLE [Suspect]
     Indication: ASPERGILLOSIS
     Dosage: 400 MG, 1X/DAY
     Route: 048
     Dates: start: 20100801
  3. VORICONAZOLE [Interacting]
     Dosage: UNK
  4. BUDESONIDE [Interacting]
     Indication: CHRONIC GRANULOMATOUS DISEASE
     Dosage: 9 MG, 1X/DAY
     Route: 048
     Dates: start: 20100701, end: 20101101

REACTIONS (3)
  - CUSHING'S SYNDROME [None]
  - DRUG INTERACTION [None]
  - SECONDARY HYPERTENSION [None]
